FAERS Safety Report 5922474-7 (Version None)
Quarter: 2008Q3

REPORT INFORMATION
  Report Type: 
  Country: None (occurrence: None)
  Receive Date: 20080909
  Receipt Date: 20070702
  Transmission Date: 20090109
  Serious: Yes (Death)
  Sender: FDA-Public Use
  Company Number: 150-20785-07041238

PATIENT
  Age: 62 Year
  Sex: Female

DRUGS (3)
  1. THALIDOMIDE [Suspect]
     Indication: MULTIPLE MYELOMA
     Dosage: 100 MG, 2 IN 1 D, ORAL
     Route: 048
     Dates: start: 20060801
  2. BENSYL (BENZYLPENICILLIN) [Concomitant]
  3. MERONEM (MEROPENEM) [Concomitant]

REACTIONS (1)
  - SEPSIS [None]
